FAERS Safety Report 17817465 (Version 1)
Quarter: 2020Q2

REPORT INFORMATION
  Report Type: Spontaneous
  Country: GB (occurrence: GB)
  Receive Date: 20200522
  Receipt Date: 20200522
  Transmission Date: 20200714
  Serious: Yes (Other)
  Sender: FDA-Public Use
  Company Number: GB-TEVA-2020-GB-1236522

PATIENT
  Age: 89 Year
  Sex: Male
  Weight: 72 kg

DRUGS (6)
  1. FENBID [Concomitant]
     Active Substance: IBUPROFEN
     Indication: PAIN
     Dosage: 3 DOSAGE FORMS DAILY; APPLY 3 TIMES PER DAY
     Dates: start: 20200116
  2. COCODAMOL [Concomitant]
     Active Substance: ACETAMINOPHEN\CODEINE PHOSPHATE
     Dosage: TO BE TAKEN FOUR TIMES A DAY:UNIT DOSE :2 DOSAGEFORM
     Dates: start: 20200116
  3. OLANZAPINE. [Concomitant]
     Active Substance: OLANZAPINE
     Dosage: 1 DOSAGEFORM
     Dates: start: 20200116
  4. OXYNORM [Concomitant]
     Active Substance: OXYCODONE HYDROCHLORIDE
     Dosage: TAKE BEFORE SHOWERING AND BEFORE ...UNIT DOSE :2.5 ML
     Dates: start: 20200304
  5. LANSOPRAZOLE. [Concomitant]
     Active Substance: LANSOPRAZOLE
     Dosage: 1 DOSAGE FORMS DAILY;
     Dates: start: 20200116
  6. OXYCODONE [Suspect]
     Active Substance: OXYCODONE
     Dosage: 5MG/5ML
     Dates: start: 20200427

REACTIONS (3)
  - Hallucination, visual [Recovered/Resolved]
  - Dry mouth [Unknown]
  - Tachycardia [Unknown]

NARRATIVE: CASE EVENT DATE: 20200427
